FAERS Safety Report 6176234-5 (Version None)
Quarter: 2009Q2

REPORT INFORMATION
  Report Type: 
  Country: None (occurrence: None)
  Receive Date: 20090501
  Receipt Date: 20090428
  Transmission Date: 20091009
  Serious: Yes (Other)
  Sender: FDA-Public Use
  Company Number: A0781389A

PATIENT
  Sex: Female

DRUGS (4)
  1. PROMACTA [Suspect]
     Indication: IDIOPATHIC THROMBOCYTOPENIC PURPURA
     Dosage: 25MG PER DAY
     Route: 048
     Dates: end: 20090407
  2. NIFEDIPINE [Concomitant]
  3. IRBESARTAN AND HYDROCHLOROTHIAZIDE [Concomitant]
  4. CENESTIN [Concomitant]

REACTIONS (3)
  - HAEMORRHAGE [None]
  - THROMBOCYTHAEMIA [None]
  - THROMBOCYTOPENIA [None]
